FAERS Safety Report 10340720 (Version 2)
Quarter: 2014Q3

REPORT INFORMATION
  Report Type: Spontaneous
  Country: US (occurrence: US)
  Receive Date: 20140724
  Receipt Date: 20140917
  Transmission Date: 20150326
  Serious: Yes (Other)
  Sender: FDA-Public Use
  Company Number: US-GLAXOSMITHKLINE-A1082566A

PATIENT
  Age: 66 Year
  Sex: Female

DRUGS (1)
  1. BENLYSTA [Suspect]
     Active Substance: BELIMUMAB
     Indication: SYSTEMIC LUPUS ERYTHEMATOSUS
     Dosage: 250MG EVERY TWO WEEKS
     Route: 042
     Dates: start: 20110701

REACTIONS (20)
  - Systemic lupus erythematosus [Not Recovered/Not Resolved]
  - Pain [Not Recovered/Not Resolved]
  - Convulsion [Unknown]
  - Mental impairment [Unknown]
  - Rash [Not Recovered/Not Resolved]
  - Fatigue [Unknown]
  - Migraine [Unknown]
  - Erythema [Unknown]
  - Wound [Unknown]
  - Skin disorder [Not Recovered/Not Resolved]
  - Vomiting [Unknown]
  - Balance disorder [Unknown]
  - Urinary tract infection [Unknown]
  - Amnesia [Unknown]
  - Depression [Unknown]
  - Anxiety [Unknown]
  - Arthropathy [Unknown]
  - Contusion [Not Recovered/Not Resolved]
  - Malaise [Unknown]
  - Decreased appetite [Unknown]
